FAERS Safety Report 6268472-8 (Version None)
Quarter: 2009Q3

REPORT INFORMATION
  Report Type: 
  Country: None (occurrence: None)
  Receive Date: 20090715
  Receipt Date: 20090708
  Transmission Date: 20100115
  Serious: Yes (Disabling)
  Sender: FDA-Public Use
  Company Number: US-ASTRAZENECA-2009UW19303

PATIENT
  Age: 50 Year
  Sex: Male

DRUGS (4)
  1. SEROQUEL [Suspect]
     Route: 048
  2. PERCOCET [Suspect]
  3. ANTIBIOTIC [Suspect]
  4. WELLBUTRIN [Concomitant]

REACTIONS (2)
  - DYSPHAGIA [None]
  - HICCUPS [None]
